FAERS Safety Report 22219864 (Version 2)
Quarter: 2023Q2

REPORT INFORMATION
  Report Type: Other
  Country: AU (occurrence: None)
  Receive Date: 20230417
  Receipt Date: 20230428
  Transmission Date: 20230722
  Serious: Yes (Hospitalization)
  Sender: FDA-Public Use
  Company Number: AU-ROCHE-3310815

PATIENT
  Sex: Male
  Weight: 75.4 kg

DRUGS (3)
  1. MOSUNETUZUMAB [Suspect]
     Active Substance: MOSUNETUZUMAB
     Indication: Follicular lymphoma
     Dosage: ON 13/FEB/2023, HE RECEIVED MOST RECENT DOSE OF MOSUNETUZUMAB PRIOR TO AE 30 MG
     Route: 042
     Dates: start: 20230124
  2. ENTECAVIR [Concomitant]
     Active Substance: ENTECAVIR
     Dosage: 500 MCG
  3. VALACYCLOVIR HYDROCHLORIDE [Concomitant]
     Active Substance: VALACYCLOVIR HYDROCHLORIDE
     Dosage: 500 MCG DAILY

REACTIONS (1)
  - Haemophagocytic lymphohistiocytosis [Unknown]
